FAERS Safety Report 13027511 (Version 6)
Quarter: 2017Q1

REPORT INFORMATION
  Report Type: Spontaneous
  Country: US (occurrence: US)
  Receive Date: 20161214
  Receipt Date: 20170331
  Transmission Date: 20170428
  Serious: Yes (Hospitalization)
  Sender: FDA-Public Use
  Company Number: US-BAYER-2016-237336

PATIENT
  Age: 72 Year
  Sex: Female

DRUGS (5)
  1. ADEMPAS [Suspect]
     Active Substance: RIOCIGUAT
     Indication: PRODUCT USED FOR UNKNOWN INDICATION
     Dosage: 2 MG, TID
     Route: 065
  2. ADEMPAS [Suspect]
     Active Substance: RIOCIGUAT
     Indication: PRODUCT USED FOR UNKNOWN INDICATION
     Dosage: 2.5 MG, TID
  3. AMBRISENTAN [Suspect]
     Active Substance: AMBRISENTAN
     Indication: PRODUCT USED FOR UNKNOWN INDICATION
     Dosage: 10 MG, QD
     Route: 065
  4. TYVASO [Concomitant]
     Active Substance: TREPROSTINIL
     Dosage: UNK
  5. NIFEDIPINE. [Concomitant]
     Active Substance: NIFEDIPINE
     Dosage: UNK

REACTIONS (13)
  - Urinary tract infection [None]
  - Vomiting [Recovered/Resolved]
  - Cough [None]
  - Fatigue [None]
  - Nausea [Recovered/Resolved]
  - Dyspnoea [None]
  - Abdominal discomfort [None]
  - Eructation [None]
  - Pneumonia [Not Recovered/Not Resolved]
  - Peripheral swelling [None]
  - Oxygen saturation decreased [None]
  - Tinnitus [Not Recovered/Not Resolved]
  - Nasal congestion [None]
